FAERS Safety Report 10153308 (Version 1)
Quarter: 2014Q2

REPORT INFORMATION
  Report Type: Spontaneous
  Country: US (occurrence: US)
  Receive Date: 20140505
  Receipt Date: 20140505
  Transmission Date: 20141212
  Serious: Yes (Hospitalization)
  Sender: FDA-Public Use
  Company Number: US-DSJP-DSU-2014-106524

PATIENT
  Sex: 0

DRUGS (6)
  1. WELCHOL [Suspect]
     Indication: HYPERLIPIDAEMIA
     Dosage: 1250 MG, BID
     Route: 048
     Dates: start: 2012, end: 20131218
  2. WELCHOL [Suspect]
     Dosage: 1875 MG, BID
     Route: 048
     Dates: start: 201312
  3. WELCHOL [Suspect]
     Indication: HYPERLIPIDAEMIA
     Dosage: 3.75 G, QD
     Route: 048
     Dates: start: 20131219, end: 201312
  4. LOSARTAN [Concomitant]
     Indication: HYPERTENSION
     Dosage: UNK
     Route: 048
  5. AMLODIPINE [Concomitant]
     Indication: HYPERTENSION
     Dosage: UNK
     Route: 048
  6. PANTOPRAZOLE [Concomitant]
     Indication: GASTROINTESTINAL DISORDER
     Dosage: UNK
     Route: 048

REACTIONS (3)
  - Thyroid cancer [Recovered/Resolved]
  - Choking [Recovered/Resolved]
  - Drug administration error [Recovered/Resolved]
